FAERS Safety Report 9137000 (Version 1)
Quarter: 2013Q1

REPORT INFORMATION
  Report Type: Spontaneous
  Country: US (occurrence: US)
  Receive Date: 20130304
  Receipt Date: 20130304
  Transmission Date: 20140127
  Serious: No
  Sender: FDA-Public Use
  Company Number: US-ABBOTT-13P-163-1050488-00

PATIENT
  Sex: Male
  Weight: 65.38 kg

DRUGS (4)
  1. ANDROGEL [Suspect]
     Indication: BLOOD TESTOSTERONE DECREASED
     Dosage: 2 PUMPS PER DAY
     Dates: start: 2012, end: 2012
  2. ANDROGEL [Suspect]
     Dosage: 3 PUMPS PER DAY
  3. ANDROGEL [Suspect]
     Dosage: PUMPS PER DAY
     Dates: start: 2012, end: 201201
  4. ANDROGEL [Suspect]
     Dosage: 6 PUMPS
     Dates: start: 201201

REACTIONS (3)
  - Weight decreased [Unknown]
  - Blood testosterone decreased [Unknown]
  - Prostatic specific antigen decreased [Unknown]
